FAERS Safety Report 5481109-0 (Version None)
Quarter: 2007Q4

REPORT INFORMATION
  Report Type: 
  Country: None (occurrence: None)
  Receive Date: 20071003
  Receipt Date: 20061218
  Transmission Date: 20080405
  Serious: Yes (Other)
  Sender: FDA-Public Use
  Company Number: 6028344

PATIENT
  Age: 50 Year
  Sex: Male

DRUGS (1)
  1. ISOTRETINOIN [Suspect]
     Indication: ROSACEA
     Dosage: 40,000 MG (20 MG, 2 IN 1 D)

REACTIONS (5)
  - ANAL FISSURE [None]
  - LIP DRY [None]
  - PROCTITIS [None]
  - RECTAL HAEMORRHAGE [None]
  - SKIN EXFOLIATION [None]
